FAERS Safety Report 20452091 (Version 3)
Quarter: 2023Q4

REPORT INFORMATION
  Report Type: Spontaneous
  Country: US (occurrence: US)
  Receive Date: 20220209
  Receipt Date: 20231120
  Transmission Date: 20240109
  Serious: Yes (Other)
  Sender: FDA-Public Use
  Company Number: US-GILEAD-2022-0569147

PATIENT
  Age: 0 Year
  Sex: Male
  Weight: 81.633 kg

DRUGS (21)
  1. VIREAD [Suspect]
     Active Substance: TENOFOVIR DISOPROXIL FUMARATE
     Indication: HIV infection
     Dosage: UNK
     Route: 048
     Dates: start: 2007
  2. TRUVADA [Suspect]
     Active Substance: EMTRICITABINE\TENOFOVIR DISOPROXIL FUMARATE
     Indication: HIV infection
     Dosage: UNK
     Route: 048
     Dates: start: 2007
  3. TRUVADA [Suspect]
     Active Substance: EMTRICITABINE\TENOFOVIR DISOPROXIL FUMARATE
     Dosage: UNK
     Route: 048
     Dates: start: 201008, end: 201903
  4. BIKTARVY [Concomitant]
     Active Substance: BICTEGRAVIR SODIUM\EMTRICITABINE\TENOFOVIR ALAFENAMIDE FUMARATE
  5. COMBIVIR [Concomitant]
     Active Substance: LAMIVUDINE\ZIDOVUDINE
  6. EMTRIVA [Concomitant]
     Active Substance: EMTRICITABINE
  7. EPIVIR [Concomitant]
     Active Substance: LAMIVUDINE
  8. KALETRA [Concomitant]
     Active Substance: LOPINAVIR\RITONAVIR
  9. LEXIVA [Concomitant]
     Active Substance: FOSAMPRENAVIR CALCIUM
  10. NORVIR [Concomitant]
     Active Substance: RITONAVIR
  11. PREZCOBIX [Concomitant]
     Active Substance: COBICISTAT\DARUNAVIR ETHANOLATE
  12. PREZISTA [Concomitant]
     Active Substance: DARUNAVIR ETHANOLATE
  13. RETROVIR [Concomitant]
     Active Substance: ZIDOVUDINE
  14. REYATAZ [Concomitant]
     Active Substance: ATAZANAVIR SULFATE
  15. SUSTIVA [Concomitant]
     Active Substance: EFAVIRENZ
  16. TRIZIVIR [Concomitant]
     Active Substance: ABACAVIR SULFATE\LAMIVUDINE\ZIDOVUDINE
  17. DOXAZOSIN [Concomitant]
     Active Substance: DOXAZOSIN MESYLATE
  18. ATORVASTATIN [Concomitant]
     Active Substance: ATORVASTATIN
  19. VITAMIN D NOS [Concomitant]
     Active Substance: VITAMIN D NOS
  20. FINASTERIDE [Concomitant]
     Active Substance: FINASTERIDE
  21. DESCOVY [Concomitant]
     Active Substance: EMTRICITABINE\TENOFOVIR ALAFENAMIDE FUMARATE

REACTIONS (14)
  - Renal impairment [Unknown]
  - Osteopenia [Not Recovered/Not Resolved]
  - Bone demineralisation [Unknown]
  - Pain [Not Recovered/Not Resolved]
  - Emotional distress [Not Recovered/Not Resolved]
  - Anxiety [Not Recovered/Not Resolved]
  - Anhedonia [Not Recovered/Not Resolved]
  - Body height decreased [Unknown]
  - Bone pain [Unknown]
  - Gait disturbance [Not Recovered/Not Resolved]
  - Fatigue [Unknown]
  - Asthenia [Unknown]
  - Blood creatinine increased [Not Recovered/Not Resolved]
  - Proteinuria [Not Recovered/Not Resolved]

NARRATIVE: CASE EVENT DATE: 20120701
